FAERS Safety Report 5294024-2 (Version None)
Quarter: 2007Q2

REPORT INFORMATION
  Report Type: 
  Country: None (occurrence: None)
  Receive Date: 20070405
  Receipt Date: 20070326
  Transmission Date: 20071010
  Serious: Yes (Other)
  Sender: FDA-Public Use
  Company Number: 2007EN000093

PATIENT
  Age: 33 Year
  Sex: Female
  Weight: 73.9363 kg

DRUGS (3)
  1. OPANA [Suspect]
     Indication: PAIN
     Dosage: 5 MG; ; UNK
     Dates: start: 20070326, end: 20070326
  2. OPANA ER [Suspect]
     Indication: PAIN
     Dosage: 5 MG; Q12H; UNK
     Dates: start: 20070326, end: 20070326
  3. LEXAPRO [Concomitant]

REACTIONS (8)
  - DIARRHOEA [None]
  - DRY MOUTH [None]
  - DYSPHAGIA [None]
  - EMOTIONAL DISORDER [None]
  - FEELING ABNORMAL [None]
  - IRRITABILITY [None]
  - THROAT TIGHTNESS [None]
  - URTICARIA [None]
